FAERS Safety Report 24750511 (Version 2)
Quarter: 2025Q1

REPORT INFORMATION
  Report Type: Spontaneous
  Country: CZ (occurrence: CZ)
  Receive Date: 20241218
  Receipt Date: 20250101
  Transmission Date: 20250409
  Serious: Yes (Other)
  Sender: JOHNSON AND JOHNSON
  Company Number: CZ-CZSUKL-24003538

PATIENT
  Age: 13 Year
  Sex: Female
  Weight: 57 kg

DRUGS (3)
  1. SIMPONI [Suspect]
     Active Substance: GOLIMUMAB
     Indication: Juvenile idiopathic arthritis
  2. SIMPONI [Suspect]
     Active Substance: GOLIMUMAB
     Dosage: 1X EVERY 4 WEEKS
     Dates: start: 20200806, end: 20231118
  3. Leflunomid Sandoz 20mg [Concomitant]
     Indication: Juvenile idiopathic arthritis
     Dosage: 1 TABLET DAILY
     Dates: start: 20200115, end: 20240405

REACTIONS (2)
  - Psoriasis [Recovered/Resolved]
  - Osteomyelitis chronic [Recovered/Resolved]

NARRATIVE: CASE EVENT DATE: 20230910
